FAERS Safety Report 8340852 (Version 2)
Quarter: 2012Q4

REPORT INFORMATION
  Report Type: 
  Country: US (occurrence: US)
  Receive Date: 20120118
  Receipt Date: 20121207
  Transmission Date: 20130627
  Serious: Yes (Life-Threatening, Other)
  Sender: FDA-Public Use
  Company Number: US-RANBAXY-2012US-51799

PATIENT
  Age: 65 Year
  Sex: Male

DRUGS (6)
  1. BENAZEPRIL [Suspect]
     Indication: HYPERTENSION
     Dosage: UNK
     Route: 065
  2. PREDNISONE [Suspect]
     Indication: OEDEMA
     Dosage: UNK
     Route: 065
  3. AMLODIPINE [Concomitant]
     Indication: HYPERTENSION
     Dosage: UNK
     Route: 065
  4. ASPIRIN [Concomitant]
     Indication: HYPERTENSION
     Dosage: UNK
     Route: 065
  5. HYDROXYZINE [Concomitant]
     Indication: PRODUCT USED FOR UNKNOWN INDICATION
     Dosage: UNK
     Route: 065
  6. LOPRESSOR [Concomitant]
     Indication: HYPERTENSION
     Dosage: UNK
     Route: 065

REACTIONS (4)
  - Angioedema [Unknown]
  - Dyspnoea [Unknown]
  - Rash erythematous [Unknown]
  - Withdrawal syndrome [Unknown]
